FAERS Safety Report 7981473-4 (Version None)
Quarter: 2011Q4

REPORT INFORMATION
  Report Type: 
  Country: None (occurrence: None)
  Receive Date: 20111215
  Receipt Date: 20111208
  Transmission Date: 20120403
  Serious: Yes (Death, Other)
  Sender: FDA-Public Use
  Company Number: US-PFIZER INC-2011286741

PATIENT
  Sex: Male

DRUGS (10)
  1. LASIX [Concomitant]
     Dosage: 40 MG, 1X/DAY
  2. INSULIN [Concomitant]
     Dosage: UNK
  3. PLAVIX [Concomitant]
     Dosage: 75 MG, 1X/DAY
  4. AMBIEN [Concomitant]
     Dosage: 10 MG, AS NEEDED
  5. ALLOPURINOL [Concomitant]
     Dosage: 150 MG, 1X/DAY
  6. SPIRIVA [Concomitant]
     Dosage: UNK, 1X/DAY
  7. ALDACTONE [Concomitant]
     Dosage: 25 MG, 1X/DAY
  8. COREG [Concomitant]
     Dosage: 6.25 MG, 2X/DAY
  9. ACETYLSALICYLIC ACID [Concomitant]
     Dosage: 162 MG, 1X/DAY
  10. REVATIO [Suspect]
     Indication: PULMONARY ARTERIAL HYPERTENSION
     Dosage: 20 MG, 3X/DAY
     Route: 048
     Dates: start: 20110101

REACTIONS (5)
  - CARDIAC FAILURE CONGESTIVE [None]
  - PULMONARY HYPERTENSION [None]
  - RESPIRATORY FAILURE [None]
  - CARDIAC ARREST [None]
  - HYPOTENSION [None]
